FAERS Safety Report 5396494-8 (Version None)
Quarter: 2007Q3

REPORT INFORMATION
  Report Type: 
  Country: None (occurrence: None)
  Receive Date: 20070725
  Receipt Date: 20070718
  Transmission Date: 20080115
  Serious: Yes (Hospitalization)
  Sender: FDA-Public Use
  Company Number: FR-GENENTECH-232561

PATIENT
  Sex: Male
  Weight: 100 kg

DRUGS (8)
  1. RITUXAN [Suspect]
     Indication: CHRONIC LYMPHOCYTIC LEUKAEMIA
     Dosage: 1050 MG, Q4W
     Route: 042
     Dates: start: 20060123
  2. FLUDARABINE PHOSPHATE [Suspect]
     Indication: CHRONIC LYMPHOCYTIC LEUKAEMIA
     Dosage: 50 MG, UNK
     Route: 042
     Dates: start: 20060124
  3. CYCLOPHOSPHAMIDE [Suspect]
     Indication: CHRONIC LYMPHOCYTIC LEUKAEMIA
     Dosage: 550 MG, UNK
     Route: 042
     Dates: start: 20060124
  4. PANTOPRAZOLE SODIUM [Concomitant]
     Indication: DRUG USE FOR UNKNOWN INDICATION
     Dosage: 80 MG, UNK
     Dates: start: 20040101
  5. LIPANTHYL [Concomitant]
     Indication: DRUG USE FOR UNKNOWN INDICATION
     Dosage: 200 MG, UNK
     Dates: start: 20040101
  6. VALSARTAN [Concomitant]
     Indication: DRUG USE FOR UNKNOWN INDICATION
     Dosage: 1 UNK, UNK
     Dates: start: 20040101
  7. PRAZOSINE [Concomitant]
     Indication: DRUG USE FOR UNKNOWN INDICATION
     Dates: start: 20040101
  8. DOMPERIDONE [Concomitant]
     Indication: DRUG USE FOR UNKNOWN INDICATION
     Dosage: 60 MG, UNK
     Dates: start: 20040101

REACTIONS (1)
  - SIGMOIDITIS [None]
